FAERS Safety Report 9779225 (Version 2)
Quarter: 2014Q1

REPORT INFORMATION
  Report Type: Spontaneous
  Country: US (occurrence: US)
  Receive Date: 20131223
  Receipt Date: 20140131
  Transmission Date: 20141002
  Serious: No
  Sender: FDA-Public Use
  Company Number: PHEH2013US025925

PATIENT
  Age: 55 Year
  Sex: Female

DRUGS (7)
  1. TASIGNA [Suspect]
     Dosage: 150 MG, BID
     Route: 048
     Dates: start: 20131031
  2. TASIGNA [Suspect]
     Dosage: 300 MG, BID
     Route: 048
  3. LORAZEPAM [Concomitant]
     Dosage: 1 MG, UNK
  4. PRILOSEC [Concomitant]
     Dosage: UNK UKN, UNK
  5. VITAMIN B COMPLEX [Concomitant]
     Dosage: UNK UKN, UNK
  6. VIT C [Concomitant]
     Dosage: UNK UKN, UNK
  7. HYDROCODONE/APAP [Concomitant]
     Dosage: UNK UKN, UNK

REACTIONS (14)
  - Feeling abnormal [Unknown]
  - Abnormal sensation in eye [Unknown]
  - Facial pain [Unknown]
  - Pain [Unknown]
  - Somnolence [Unknown]
  - Rash pruritic [Unknown]
  - Diarrhoea [Unknown]
  - Nausea [Unknown]
  - Abdominal pain upper [Unknown]
  - Headache [Unknown]
  - Feeling hot [Unknown]
  - Bone pain [Unknown]
  - Hypersensitivity [Unknown]
  - Speech disorder [Unknown]
